FAERS Safety Report 19774034 (Version 1)
Quarter: 2021Q3

REPORT INFORMATION
  Report Type: Other
  Country: US (occurrence: US)
  Receive Date: 20210901
  Receipt Date: 20210901
  Transmission Date: 20211014
  Serious: No
  Sender: FDA-Public Use
  Company Number: US-NEUROCRINE BIOSCIENCES INC.-2021NBI04649

PATIENT

DRUGS (5)
  1. TEMAZEPAM. [Concomitant]
     Active Substance: TEMAZEPAM
     Dosage: UNK
  2. LAMICTAL [Concomitant]
     Active Substance: LAMOTRIGINE
     Dosage: UNK
  3. INGREZZA [Suspect]
     Active Substance: VALBENAZINE
     Indication: TARDIVE DYSKINESIA
     Dosage: 120 MILLIGRAM, QD
     Route: 048
     Dates: start: 2021
  4. INGREZZA [Suspect]
     Active Substance: VALBENAZINE
     Dosage: 80 MILLIGRAM, QD
     Route: 048
     Dates: start: 2019, end: 2021
  5. LITHIUM. [Concomitant]
     Active Substance: LITHIUM
     Dosage: UNK

REACTIONS (3)
  - Prescribed overdose [Unknown]
  - Constipation [Unknown]
  - Abdominal pain upper [Unknown]
